FAERS Safety Report 24637330 (Version 1)
Quarter: 2024Q4

REPORT INFORMATION
  Report Type: Spontaneous
  Country: US (occurrence: US)
  Receive Date: 20241119
  Receipt Date: 20241119
  Transmission Date: 20250114
  Serious: No
  Sender: TEVA
  Company Number: US-TEVA-VS-3260872

PATIENT
  Age: 65 Year
  Sex: Male

DRUGS (2)
  1. TRAMADOL HYDROCHLORIDE [Suspect]
     Active Substance: TRAMADOL HYDROCHLORIDE
     Indication: Pain
     Route: 065
  2. ASPIRIN [Concomitant]
     Active Substance: ASPIRIN
     Indication: Product used for unknown indication

REACTIONS (6)
  - Headache [Unknown]
  - Adverse drug reaction [Unknown]
  - Abdominal discomfort [Unknown]
  - Drug ineffective [Unknown]
  - Epistaxis [Unknown]
  - Prescription drug used without a prescription [Unknown]
